FAERS Safety Report 9278835 (Version 2)
Quarter: 2013Q2

REPORT INFORMATION
  Report Type: Spontaneous
  Country: US (occurrence: US)
  Receive Date: 20130508
  Receipt Date: 20130517
  Transmission Date: 20140414
  Serious: No
  Sender: FDA-Public Use
  Company Number: US-PFIZER INC-2013140466

PATIENT
  Age: 49 Year
  Sex: Female
  Weight: 92.1 kg

DRUGS (15)
  1. GENOTROPIN [Suspect]
     Indication: GROWTH HORMONE DEFICIENCY
     Dosage: 0.2 MG DAILY
     Route: 058
     Dates: start: 20130423
  2. VICODIN ES [Concomitant]
     Dosage: 7.5-300, UNK
  3. CLONAZEPAM [Concomitant]
     Dosage: 1 MG, UNK
  4. LORAZEPAM [Concomitant]
     Dosage: 2 MG, UNK
  5. BACLOFEN [Concomitant]
     Dosage: 10 MG, UNK
  6. ARMOUR THYROID [Concomitant]
     Dosage: 15 MG, UNK
  7. PROGESTERONE [Concomitant]
     Dosage: 100 MG, UNK
  8. NIACIN [Concomitant]
     Dosage: 125 MG, UNK
  9. CO-Q-10 [Concomitant]
     Dosage: UNK
  10. CALCIUM/MINERALS/VITAMIN D [Concomitant]
     Dosage: UNK
  11. VITAMIN D [Concomitant]
     Dosage: 1000 IU, UNK
  12. TESTOSTERONE [Concomitant]
     Dosage: UNK
  13. MELATONIN [Concomitant]
     Dosage: 3 MG, UNK
  14. VITAMIN B12 [Concomitant]
     Dosage: 1000, UNK
  15. 5-HTP [Concomitant]
     Dosage: 50 MG, UNK

REACTIONS (7)
  - Headache [Unknown]
  - Gastric disorder [Unknown]
  - Decreased appetite [Unknown]
  - Diarrhoea [Unknown]
  - Nausea [Unknown]
  - Vomiting [Unknown]
  - Fatigue [Unknown]
